FAERS Safety Report 15581846 (Version 2)
Quarter: 2019Q4

REPORT INFORMATION
  Report Type: Spontaneous
  Country: US (occurrence: US)
  Receive Date: 20181102
  Receipt Date: 20191105
  Transmission Date: 20200122
  Serious: No
  Sender: FDA-Public Use
  Company Number: US-RADIUS HEALTH INC.-2018US001901

PATIENT
  Sex: Female
  Weight: 46 kg

DRUGS (1)
  1. TYMLOS [Suspect]
     Active Substance: ABALOPARATIDE
     Indication: OSTEOPOROSIS POSTMENOPAUSAL
     Dosage: 80 MCG, QD
     Route: 058
     Dates: start: 20180309, end: 201808

REACTIONS (4)
  - Pollakiuria [Recovered/Resolved]
  - Heart rate increased [Recovered/Resolved]
  - Micturition urgency [Recovered/Resolved]
  - Palpitations [Recovered/Resolved]
